FAERS Safety Report 4867754-1 (Version None)
Quarter: 2005Q4

REPORT INFORMATION
  Report Type: 
  Country: None (occurrence: None)
  Receive Date: 20051222
  Receipt Date: 20051222
  Transmission Date: 20060501
  Serious: Yes (Other)
  Sender: FDA-Public Use
  Company Number: None

PATIENT
  Age: 70 Year
  Sex: Female
  Weight: 54.8852 kg

DRUGS (3)
  1. ACTONEL [Suspect]
     Indication: OSTEOPOROSIS
     Dosage: 35 MG ONCE A WEEK ORAL
     Route: 048
     Dates: end: 20051201
  2. MULTI-VITAMIN [Concomitant]
  3. CALCIUM GLUCONATE [Concomitant]

REACTIONS (3)
  - HEADACHE [None]
  - HYPOAESTHESIA [None]
  - PARAESTHESIA [None]
